FAERS Safety Report 7970743-1 (Version None)
Quarter: 2011Q4

REPORT INFORMATION
  Report Type: 
  Country: None (occurrence: None)
  Receive Date: 20111212
  Receipt Date: 20111128
  Transmission Date: 20120403
  Serious: Yes (Hospitalization, Other)
  Sender: FDA-Public Use
  Company Number: PHHY2011US01785

PATIENT
  Sex: Female
  Weight: 98 kg

DRUGS (15)
  1. PHENOBARBITAL TAB [Concomitant]
     Dosage: 129 MG, AT BED TIME
     Route: 048
  2. ALENDRONATE SODIUM [Concomitant]
     Route: 048
  3. AMITRIPTYLINE HCL [Concomitant]
     Dosage: 25 MG, A DAY
  4. EXJADE [Suspect]
     Indication: LYMPHOPROLIFERATIVE DISORDER
     Dosage: 2000 MG, QD
     Route: 048
     Dates: end: 20111001
  5. RELAFEN [Concomitant]
     Dosage: 75 MG, BID
  6. CALCIUM CARBONATE [Concomitant]
     Route: 048
  7. CARBAMAZEPINE [Concomitant]
     Route: 048
  8. TOPAMAX [Concomitant]
     Dosage: 100 MG, BID
  9. COLESTIPOL HYDROCHLORIDE [Concomitant]
     Dosage: 1 G, BID
  10. PSYLLIUM [Concomitant]
     Dosage: UNK UKN, PRN
  11. HYDROCORTISONE [Concomitant]
     Route: 048
  12. MOMETASONE FUROATE [Concomitant]
  13. NABUMETONE [Concomitant]
     Route: 048
  14. NORCO [Concomitant]
     Dosage: UNK UKN, PRN
  15. ALBUTEROL [Concomitant]

REACTIONS (9)
  - DYSARTHRIA [None]
  - ASTHENIA [None]
  - ALTERED STATE OF CONSCIOUSNESS [None]
  - INFLUENZA LIKE ILLNESS [None]
  - IRON OVERLOAD [None]
  - FATIGUE [None]
  - CONVULSION [None]
  - DIARRHOEA [None]
  - SINUSITIS [None]
